FAERS Safety Report 4661358-1 (Version None)
Quarter: 2005Q2

REPORT INFORMATION
  Report Type: 
  Country: None (occurrence: None)
  Receive Date: 20050427
  Receipt Date: 20050222
  Transmission Date: 20051028
  Serious: No
  Sender: FDA-Public Use
  Company Number: 212609

PATIENT
  Age: 17 Year
  Sex: Female
  Weight: 62 kg

DRUGS (9)
  1. XOLAIR [Suspect]
     Indication: ASTHMA
     Dosage: 375 MG, Q2W, SUBCUTANEOUS
     Route: 058
     Dates: start: 20040917, end: 20041104
  2. SEREVENT DISKUS (SALMETEROL XINAFOATE) [Concomitant]
  3. SINGULAIR [Concomitant]
  4. ZYRTEC [Concomitant]
  5. ZANTAC [Concomitant]
  6. DOXEPIN (DOXEPIN HYDROCHLORIDE) [Concomitant]
  7. ATARAX [Concomitant]
  8. AVAPENA (CHLOROPYRAMINE HYDROCHLORIDE) [Concomitant]
  9. KENALOG [Concomitant]

REACTIONS (2)
  - CHEST DISCOMFORT [None]
  - URTICARIA [None]
